FAERS Safety Report 8044270-X (Version None)
Quarter: 2012Q1

REPORT INFORMATION
  Report Type: 
  Country: None (occurrence: None)
  Receive Date: 20120111
  Receipt Date: 20120111
  Transmission Date: 20120608
  Serious: Yes (Hospitalization)
  Sender: FDA-Public Use
  Company Number: None

PATIENT
  Age: 59 Year
  Sex: Male
  Weight: 83.6 kg

DRUGS (2)
  1. RIBAVIRIN [Suspect]
     Indication: MILLER FISHER SYNDROME
     Dosage: 1400 MG EVERY DAY PO
     Route: 048
     Dates: start: 20091103, end: 20100304
  2. INTERFERON [Suspect]
     Indication: MILLER FISHER SYNDROME
     Dosage: 180 MCG QWEEK SQ
     Route: 058
     Dates: start: 20091103, end: 20100304

REACTIONS (4)
  - GAIT DISTURBANCE [None]
  - GUILLAIN-BARRE SYNDROME [None]
  - HYPOAESTHESIA [None]
  - EYELID PTOSIS [None]
